FAERS Safety Report 24905776 (Version 1)
Quarter: 2025Q1

REPORT INFORMATION
  Report Type: Spontaneous
  Country: US (occurrence: US)
  Receive Date: 20250130
  Receipt Date: 20250130
  Transmission Date: 20250409
  Serious: Yes (Other)
  Sender: NOVARTIS
  Company Number: US-002147023-NVSC2025US013153

PATIENT
  Sex: Female

DRUGS (1)
  1. KESIMPTA [Suspect]
     Active Substance: OFATUMUMAB
     Indication: Product used for unknown indication
     Dosage: UNK UNK, QMO (20MG/0.4ML)
     Route: 065

REACTIONS (5)
  - Multiple sclerosis [Unknown]
  - Product storage error [Unknown]
  - Cognitive disorder [Unknown]
  - Speech disorder [Unknown]
  - Feeling abnormal [Unknown]
